FAERS Safety Report 12740046 (Version 3)
Quarter: 2024Q4

REPORT INFORMATION
  Report Type: Spontaneous
  Country: US (occurrence: US)
  Receive Date: 20160913
  Receipt Date: 20241120
  Transmission Date: 20250114
  Serious: Yes (Other)
  Sender: SANOFI AVENTIS
  Company Number: US-SA-2016SA166462

PATIENT
  Age: 67 Year
  Sex: Female

DRUGS (1)
  1. DOCETAXEL [Suspect]
     Active Substance: DOCETAXEL
     Indication: Breast cancer
     Dosage: UNK UNK,QCY

REACTIONS (4)
  - Cystoid macular oedema [Unknown]
  - Oedema peripheral [Unknown]
  - Vision blurred [Unknown]
  - Visual field defect [Unknown]
